FAERS Safety Report 8373221-3 (Version None)
Quarter: 2012Q2

REPORT INFORMATION
  Report Type: 
  Country: None (occurrence: None)
  Receive Date: 20120521
  Receipt Date: 20120510
  Transmission Date: 20120825
  Serious: Yes (Other)
  Sender: FDA-Public Use
  Company Number: JP-VERTEX PHARMACEUTICALS INC.-AE-2012-007162

PATIENT
  Age: 57 Year
  Sex: Female

DRUGS (5)
  1. RIBAVIRIN [Concomitant]
     Indication: HEPATITIS C
     Route: 048
     Dates: start: 20120315, end: 20120501
  2. PEGINTERFERON ALFA-2B [Concomitant]
     Indication: HEPATITIS C
     Route: 051
     Dates: start: 20120315
  3. TELAVIC (TELAPREVIR) [Suspect]
     Indication: HEPATITIS C
     Route: 048
     Dates: start: 20120315
  4. RIBAVIRIN [Concomitant]
     Route: 048
     Dates: start: 20120502
  5. PURSENNID [Concomitant]
     Route: 048
     Dates: start: 20120319, end: 20120321

REACTIONS (2)
  - PANCYTOPENIA [None]
  - BLOOD URIC ACID INCREASED [None]
